FAERS Safety Report 16656646 (Version 2)
Quarter: 2019Q3

REPORT INFORMATION
  Report Type: Spontaneous
  Country: US (occurrence: US)
  Receive Date: 20190801
  Receipt Date: 20190808
  Transmission Date: 20191004
  Serious: No
  Sender: FDA-Public Use
  Company Number: US-PFIZER INC-2019326234

PATIENT
  Age: 32 Year
  Sex: Female
  Weight: 104.33 kg

DRUGS (5)
  1. IBUPROFEN [IBUPROFEN SODIUM] [Concomitant]
     Dosage: 800 MG, AS NEEDED
  2. MIRENA [Concomitant]
     Active Substance: LEVONORGESTREL
     Indication: CONTRACEPTION
     Dosage: UNK (INTRAUTERINE DEVICE)
  3. METFORMIN [Concomitant]
     Active Substance: METFORMIN HYDROCHLORIDE
     Indication: DIABETES MELLITUS
     Dosage: 50 MG, UNK
  4. AMITRIPTYLINE [Concomitant]
     Active Substance: AMITRIPTYLINE
     Indication: ANTIDEPRESSANT THERAPY
     Dosage: UNK
  5. LYRICA [Suspect]
     Active Substance: PREGABALIN
     Indication: CONNECTIVE TISSUE DISORDER
     Dosage: 150 MG, 3X/DAY
     Route: 048

REACTIONS (11)
  - Pain [Unknown]
  - Vomiting [Unknown]
  - Drug ineffective for unapproved indication [Unknown]
  - Tremor [Unknown]
  - Withdrawal syndrome [Unknown]
  - Memory impairment [Unknown]
  - Product dose omission [Unknown]
  - Insulin resistance [Unknown]
  - Off label use [Unknown]
  - Nausea [Unknown]
  - Insomnia [Unknown]
